FAERS Safety Report 6174527-9 (Version None)
Quarter: 2009Q2

REPORT INFORMATION
  Report Type: 
  Country: None (occurrence: None)
  Receive Date: 20090430
  Receipt Date: 20081030
  Transmission Date: 20091009
  Serious: No
  Sender: FDA-Public Use
  Company Number: US-ASTRAZENECA-2008UW13966

PATIENT
  Age: 86 Year
  Sex: Female
  Weight: 56.2 kg

DRUGS (7)
  1. NEXIUM [Suspect]
     Indication: GASTROOESOPHAGEAL REFLUX DISEASE
     Route: 048
  2. NEXIUM [Suspect]
     Indication: HIATUS HERNIA
     Route: 048
  3. CELEBREX [Concomitant]
  4. LIPITOR [Concomitant]
  5. VITAMIN B-12 [Concomitant]
     Dosage: 1000 MG
  6. FOSAMAX [Concomitant]
  7. VITAMINS [Concomitant]

REACTIONS (2)
  - HYPOAESTHESIA [None]
  - NEUROPATHY PERIPHERAL [None]
